FAERS Safety Report 9493504 (Version 4)
Quarter: 2014Q1

REPORT INFORMATION
  Report Type: Report from Study
  Country: IL (occurrence: IL)
  Receive Date: 20130902
  Receipt Date: 20140319
  Transmission Date: 20141002
  Serious: Yes (Hospitalization, Other)
  Sender: FDA-Public Use
  Company Number: IL-ROCHE-1269211

PATIENT
  Age: 65 Year
  Sex: Female
  Weight: 112 kg

DRUGS (9)
  1. TOCILIZUMAB [Suspect]
     Indication: RHEUMATOID ARTHRITIS
     Route: 042
     Dates: start: 20130606
  2. TOCILIZUMAB [Suspect]
     Route: 042
     Dates: start: 20130704
  3. TOCILIZUMAB [Suspect]
     Route: 042
     Dates: start: 20130801, end: 20130802
  4. SALAZOPYRIN [Concomitant]
     Indication: RHEUMATOID ARTHRITIS
     Route: 048
     Dates: start: 20030101
  5. METHOTREXATE [Concomitant]
     Indication: RHEUMATOID ARTHRITIS
     Route: 048
     Dates: start: 20050305
  6. METHOTREXATE [Concomitant]
     Route: 048
  7. PREDNISONE [Concomitant]
     Indication: RHEUMATOID ARTHRITIS
     Route: 048
  8. NORMITEN [Concomitant]
     Route: 048
  9. OMEPRADEX [Concomitant]
     Route: 048

REACTIONS (2)
  - Arthritis [Recovering/Resolving]
  - Device related infection [Recovering/Resolving]
